FAERS Safety Report 14292386 (Version 2)
Quarter: 2018Q1

REPORT INFORMATION
  Report Type: Report from Study
  Country: MX (occurrence: MX)
  Receive Date: 20171215
  Receipt Date: 20180124
  Transmission Date: 20180509
  Serious: Yes (Hospitalization, Other)
  Sender: FDA-Public Use
  Company Number: PHHY2017MX175838

PATIENT
  Age: 86 Year
  Sex: Female

DRUGS (8)
  1. EXFORGE HCT [Suspect]
     Active Substance: AMLODIPINE BESYLATE\HYDROCHLOROTHIAZIDE\VALSARTAN
     Dosage: 0.5 DF, (AMLODIPINE 05 MG, HYDROCHLOROTHIAZIDE 12.5 MG AND VALSARTAN 160 MG), QD
     Route: 048
     Dates: start: 2012, end: 20180112
  2. NEXIUM [Concomitant]
     Active Substance: ESOMEPRAZOLE MAGNESIUM
     Indication: GASTRITIS
     Dosage: 1 DF, QD
     Route: 048
  3. DAGLA [Concomitant]
     Indication: GASTRITIS
     Dosage: 1 DF, Q12H
     Route: 048
  4. EXFORGE HCT [Suspect]
     Active Substance: AMLODIPINE BESYLATE\HYDROCHLOROTHIAZIDE\VALSARTAN
     Indication: HYPERTENSION
     Dosage: 1 DF, (AMLODIPINE 5 MG, HYDROCHLOROTHIAZIDE 12.5 MG AND VALSARTAN 160 MG), QD
     Route: 048
     Dates: start: 2012
  5. EXION [Concomitant]
     Indication: PRODUCT USED FOR UNKNOWN INDICATION
     Route: 065
  6. LYRICA [Concomitant]
     Active Substance: PREGABALIN
     Indication: NEUROPATHY PERIPHERAL
     Dosage: 1 DF, QD (SINCE 12 YEARS)
     Route: 048
  7. ANAPSIQUE [Concomitant]
     Active Substance: AMITRIPTYLINE HYDROCHLORIDE
     Indication: PRODUCT USED FOR UNKNOWN INDICATION
     Route: 065
  8. DARLAX [Concomitant]
     Indication: PRODUCT USED FOR UNKNOWN INDICATION
     Route: 065

REACTIONS (10)
  - Wrong technique in product usage process [Recovered/Resolved]
  - Infarction [Unknown]
  - Haematemesis [Recovered/Resolved]
  - Hiatus hernia [Recovered/Resolved]
  - Vomiting [Recovering/Resolving]
  - Cartilage injury [Not Recovered/Not Resolved]
  - Umbilical hernia [Recovered/Resolved]
  - Insomnia [Not Recovered/Not Resolved]
  - Drug prescribing error [Recovered/Resolved]
  - Diaphragmatic disorder [Recovered/Resolved]

NARRATIVE: CASE EVENT DATE: 2012
